FAERS Safety Report 7333969-6 (Version None)
Quarter: 2011Q1

REPORT INFORMATION
  Report Type: 
  Country: None (occurrence: None)
  Receive Date: 20110302
  Receipt Date: 20110302
  Transmission Date: 20110831
  Serious: No
  Sender: FDA-Public Use
  Company Number: None

PATIENT
  Sex: Female
  Weight: 48.9885 kg

DRUGS (3)
  1. CARISOPRODOL [Suspect]
     Indication: BACK PAIN
     Dosage: 1 NTLY
  2. CARISOPRODOL [Suspect]
     Indication: FRACTURE
     Dosage: 1 NTLY
  3. VIOXX [Concomitant]

REACTIONS (1)
  - RASH PRURITIC [None]
